FAERS Safety Report 15860490 (Version 6)
Quarter: 2019Q2

REPORT INFORMATION
  Report Type: Report from Study
  Country: None (occurrence: US)
  Receive Date: 20190123
  Receipt Date: 20190508
  Transmission Date: 20190711
  Serious: Yes (Other)
  Sender: FDA-Public Use
  Company Number: US-ABBVIE-19K-163-2631044-00

PATIENT
  Age: 16 Year
  Sex: Female

DRUGS (2)
  1. HUMIRA [Suspect]
     Active Substance: ADALIMUMAB
     Indication: CROHN^S DISEASE
     Dosage: CITRATE FREE
     Route: 058
     Dates: start: 20190111, end: 201901
  2. HUMIRA [Suspect]
     Active Substance: ADALIMUMAB
     Indication: CROHN^S DISEASE
     Dosage: CITRATE FREE
     Route: 058
     Dates: start: 20190126, end: 2019

REACTIONS (8)
  - Post procedural drainage [Unknown]
  - Incision site abscess [Unknown]
  - Gastrointestinal disorder [Unknown]
  - Procedural intestinal perforation [Unknown]
  - Tremor [Unknown]
  - Abdominal pain [Unknown]
  - Vomiting [Unknown]
  - Peritoneal perforation [Unknown]

NARRATIVE: CASE EVENT DATE: 201901
